FAERS Safety Report 6680148-1 (Version None)
Quarter: 2010Q2

REPORT INFORMATION
  Report Type: 
  Country: None (occurrence: None)
  Receive Date: 20100413
  Receipt Date: 20100408
  Transmission Date: 20101027
  Serious: Yes (Other)
  Sender: FDA-Public Use
  Company Number: US-PFIZER INC-2010044839

PATIENT
  Sex: Female
  Weight: 63.492 kg

DRUGS (6)
  1. NORVASC [Suspect]
     Indication: HYPERTENSION
     Dosage: UNK
     Dates: end: 20090101
  2. TOVIAZ [Suspect]
     Indication: POLLAKIURIA
     Dosage: UNK
     Dates: start: 20100301
  3. NITROFURANTOIN [Concomitant]
     Indication: BLADDER DISORDER
     Dosage: 100 MG, 1X/DAY
     Route: 048
  4. PRAVACHOL [Concomitant]
     Indication: BLOOD CHOLESTEROL INCREASED
     Dosage: UNK MG, UNK
     Route: 048
  5. AMLODIPINE/VALSARTAN [Concomitant]
     Indication: HYPERTENSION
     Dosage: 5/320 MG, 1X/DAY
     Route: 048
  6. VITAMINS [Concomitant]
     Dosage: UNK

REACTIONS (4)
  - ANXIETY [None]
  - DEMENTIA [None]
  - DRUG INEFFECTIVE [None]
  - NERVOUSNESS [None]
